FAERS Safety Report 9340243 (Version 2)
Quarter: 2013Q3

REPORT INFORMATION
  Report Type: Spontaneous
  Country: IT (occurrence: IT)
  Receive Date: 20130610
  Receipt Date: 20130805
  Transmission Date: 20140515
  Serious: Yes (Hospitalization)
  Sender: FDA-Public Use
  Company Number: IT-SANOFI-AVENTIS-2013SA055768

PATIENT
  Age: 69 Year
  Sex: Female

DRUGS (5)
  1. CLEXANE T [Suspect]
     Indication: DEEP VEIN THROMBOSIS
     Route: 058
     Dates: start: 20130503, end: 20130505
  2. CARDIOASPIRIN [Suspect]
     Indication: PROPHYLAXIS
     Dosage: STRENGTH: 100 MG
     Route: 048
     Dates: start: 20100101, end: 20130505
  3. PARACETAMOL/TRAMADOL [Suspect]
     Indication: PAIN IN EXTREMITY
     Dosage: STRENGTH: 37.5 MG/ 325 MG
     Route: 065
     Dates: start: 20130423, end: 20130503
  4. TORA-DOL [Suspect]
     Indication: PAIN IN EXTREMITY
     Dosage: STRENGTH: 10MG/ML
     Route: 030
     Dates: start: 20130423, end: 20130503
  5. PERIDON [Concomitant]
     Dosage: STRENGTH: 10 MG

REACTIONS (3)
  - Gastric ulcer [Recovering/Resolving]
  - Gastric ulcer haemorrhage [Recovering/Resolving]
  - Anaemia [Recovering/Resolving]
